FAERS Safety Report 8278225-7 (Version None)
Quarter: 2012Q2

REPORT INFORMATION
  Report Type: 
  Country: None (occurrence: None)
  Receive Date: 20120412
  Receipt Date: 20110620
  Transmission Date: 20120825
  Serious: No
  Sender: FDA-Public Use
  Company Number: US-ASTRAZENECA-2011SE37478

PATIENT
  Age: 60 Year
  Sex: Female
  Weight: 67.1 kg

DRUGS (6)
  1. XYZAL [Concomitant]
     Route: 065
  2. ADVAIR DISKUS 100/50 [Concomitant]
     Route: 065
  3. ASTELLIN [Concomitant]
     Route: 065
  4. XALATHIN [Concomitant]
     Route: 065
  5. CIPROFLOXACIN HCL [Concomitant]
     Route: 065
  6. NEXIUM [Suspect]
     Route: 048

REACTIONS (2)
  - OESOPHAGEAL DISORDER [None]
  - DRUG DOSE OMISSION [None]
